FAERS Safety Report 16844547 (Version 1)
Quarter: 2019Q3

REPORT INFORMATION
  Report Type: Spontaneous
  Country: FR (occurrence: FR)
  Receive Date: 20190924
  Receipt Date: 20190924
  Transmission Date: 20191005
  Serious: Yes (Other)
  Sender: FDA-Public Use
  Company Number: FR-009507513-1909FRA006614

PATIENT
  Age: 88 Year
  Sex: Male

DRUGS (6)
  1. CANCIDAS [Suspect]
     Active Substance: CASPOFUNGIN ACETATE
     Indication: SEPSIS
     Dosage: 50 MILLIGRAM, QD
     Route: 042
     Dates: start: 20190808, end: 20190816
  2. CALCIPARINE [Concomitant]
     Active Substance: HEPARIN CALCIUM
     Dosage: STRENGTH: 5 000 UI/0.2 ML
     Route: 058
  3. INSULIN HUMAN [Concomitant]
     Active Substance: INSULIN HUMAN
     Route: 058
  4. PANTOPRAZOLE SODIUM. [Concomitant]
     Active Substance: PANTOPRAZOLE SODIUM
     Dosage: 40 MILLIGRAM, QD
     Route: 042
  5. AMOXICILLIN. [Suspect]
     Active Substance: AMOXICILLIN
     Indication: SEPSIS
     Dosage: 6 GRAM, QD
     Route: 042
     Dates: start: 20190802, end: 20190808
  6. PARACETAMOL BRAUN [Concomitant]
     Active Substance: ACETAMINOPHEN
     Route: 042

REACTIONS (1)
  - Coagulation factor deficiency [Recovered/Resolved]

NARRATIVE: CASE EVENT DATE: 20190805
